FAERS Safety Report 10393421 (Version 2)
Quarter: 2014Q3

REPORT INFORMATION
  Report Type: Spontaneous
  Country: VN (occurrence: VN)
  Receive Date: 20140819
  Receipt Date: 20140829
  Transmission Date: 20150326
  Serious: Yes (Hospitalization)
  Sender: FDA-Public Use
  Company Number: VN-JNJFOC-20140813761

PATIENT
  Age: 73 Year
  Sex: Male
  Weight: 68 kg

DRUGS (3)
  1. SINTROM [Interacting]
     Active Substance: ACENOCOUMAROL
     Indication: CEREBROVASCULAR ACCIDENT
     Route: 065
     Dates: end: 20140806
  2. XARELTO [Suspect]
     Active Substance: RIVAROXABAN
     Indication: CEREBROVASCULAR ACCIDENT PROPHYLAXIS
     Route: 048
     Dates: start: 20140806
  3. XARELTO [Suspect]
     Active Substance: RIVAROXABAN
     Indication: ATRIAL FIBRILLATION
     Route: 048
     Dates: start: 20140806

REACTIONS (4)
  - Upper gastrointestinal haemorrhage [Recovering/Resolving]
  - Haematocrit decreased [Unknown]
  - Drug interaction [Unknown]
  - Haematuria [Unknown]

NARRATIVE: CASE EVENT DATE: 20140809
